FAERS Safety Report 6256949-0 (Version None)
Quarter: 2009Q3

REPORT INFORMATION
  Report Type: 
  Country: None (occurrence: None)
  Receive Date: 20090701
  Receipt Date: 20090701
  Transmission Date: 20100115
  Serious: Yes (Hospitalization)
  Sender: FDA-Public Use
  Company Number: None

PATIENT
  Sex: Male
  Weight: 100 kg

DRUGS (1)
  1. MEMANTINE HCL [Suspect]
     Dosage: 490 MG

REACTIONS (3)
  - ASTHENIA [None]
  - DYSPNOEA [None]
  - FATIGUE [None]
